FAERS Safety Report 11805683 (Version 1)
Quarter: 2015Q4

REPORT INFORMATION
  Report Type: Spontaneous
  Country: AU (occurrence: AU)
  Receive Date: 20151207
  Receipt Date: 20151207
  Transmission Date: 20160305
  Serious: Yes (Death)
  Sender: FDA-Public Use
  Company Number: AU-ACTELION-A-CH2015-127937

PATIENT
  Age: 58 Year
  Sex: Female

DRUGS (1)
  1. OPSUMIT [Suspect]
     Active Substance: MACITENTAN
     Indication: PULMONARY ARTERIAL HYPERTENSION
     Dosage: UNK
     Route: 048
     Dates: start: 201505, end: 20150815

REACTIONS (5)
  - Infective exacerbation of chronic obstructive airways disease [Fatal]
  - Pneumothorax [Fatal]
  - Chronic obstructive pulmonary disease [Fatal]
  - Bronchial secretion retention [Fatal]
  - Respiratory tract congestion [Fatal]
